FAERS Safety Report 5660039-5 (Version None)
Quarter: 2008Q1

REPORT INFORMATION
  Report Type: 
  Country: None (occurrence: None)
  Receive Date: 20080311
  Receipt Date: 20070821
  Transmission Date: 20080703
  Serious: No
  Sender: FDA-Public Use
  Company Number: US-BAYER-200712697BCC

PATIENT
  Sex: Male
  Weight: 75 kg

DRUGS (4)
  1. ALEVE [Suspect]
     Indication: HEADACHE
     Route: 048
  2. RITALIN [Concomitant]
  3. CHOLESTEROL MEDICATION [Concomitant]
  4. ULTRAM [Concomitant]

REACTIONS (1)
  - HEADACHE [None]
